FAERS Safety Report 24641723 (Version 1)
Quarter: 2024Q4

REPORT INFORMATION
  Report Type: Spontaneous
  Country: CA (occurrence: CA)
  Receive Date: 20241120
  Receipt Date: 20241120
  Transmission Date: 20250114
  Serious: Yes (Other)
  Sender: CSL BEHRING
  Company Number: CA-BEH-2024185545

PATIENT
  Age: 79 Year
  Sex: Female

DRUGS (1)
  1. ALBUREX [Suspect]
     Active Substance: ALBUMIN HUMAN
     Indication: Surgery
     Dosage: 125 ML (SOLUTION INTRAVENOUS)
     Route: 042

REACTIONS (4)
  - Anaphylactic shock [Recovered/Resolved]
  - Circulatory collapse [Recovered/Resolved]
  - Hypotension [Recovered/Resolved]
  - Pulse absent [Recovered/Resolved]
